FAERS Safety Report 6752729-8 (Version None)
Quarter: 2010Q2

REPORT INFORMATION
  Report Type: 
  Country: None (occurrence: None)
  Receive Date: 20100528
  Receipt Date: 20100518
  Transmission Date: 20101027
  Serious: Yes (Hospitalization)
  Sender: FDA-Public Use
  Company Number: 2009AC000217

PATIENT
  Age: 79 Year
  Sex: Male
  Weight: 64.4108 kg

DRUGS (45)
  1. DIGOXIN [Suspect]
     Dosage: 0.125 MG; QD; PO
     Route: 048
     Dates: start: 19970101, end: 20080301
  2. APRESOLINE [Concomitant]
  3. LIPITOR [Concomitant]
  4. PROSCAR [Concomitant]
  5. NEXIUM [Concomitant]
  6. ASPIRIN [Concomitant]
  7. IMDUR [Concomitant]
  8. COUMADIN [Concomitant]
  9. COREG [Concomitant]
  10. LASIX [Concomitant]
  11. ALDACTONE [Concomitant]
  12. K-DUR [Concomitant]
  13. GLUCOTROL [Concomitant]
  14. GENUVIA [Concomitant]
  15. CHROMAGEN [Concomitant]
  16. FLOMAX [Concomitant]
  17. HYDRALAZINE HCL [Concomitant]
  18. ISOSORBIDE MONONITRATE [Concomitant]
  19. JANUVIA [Concomitant]
  20. NITROSTAT [Concomitant]
  21. PROSCAR [Concomitant]
  22. PRINIVAL [Concomitant]
  23. PROCARDIA XL [Concomitant]
  24. GLUCOPHAGE [Concomitant]
  25. DETROL LA [Concomitant]
  26. COUMADIN [Concomitant]
  27. FINASTERIDE [Concomitant]
  28. LANTUS [Concomitant]
  29. CARVEDILOL [Concomitant]
  30. ALDACTONE [Concomitant]
  31. COREG [Concomitant]
  32. FLOMAX [Concomitant]
  33. COUMADIN [Concomitant]
  34. HYDRALAZINE HCL [Concomitant]
  35. ISOSORBIDE [Concomitant]
  36. K-DUR [Concomitant]
  37. JANUVIA [Concomitant]
  38. LANTUS [Concomitant]
  39. LASIX [Concomitant]
  40. NEXIUM [Concomitant]
  41. PROSCAR [Concomitant]
  42. *PPROVENTIL [Concomitant]
  43. ACTOS [Concomitant]
  44. SANTURA [Concomitant]
  45. OXYTOL [Concomitant]

REACTIONS (51)
  - ACUTE MYOCARDIAL INFARCTION [None]
  - ANAEMIA [None]
  - ANHEDONIA [None]
  - AORTIC VALVE SCLEROSIS [None]
  - ATRIAL FIBRILLATION [None]
  - ATRIAL FLUTTER [None]
  - BLOOD GLUCOSE INCREASED [None]
  - BRADYCARDIA [None]
  - BREAST MASS [None]
  - CARDIAC ANEURYSM [None]
  - CARDIAC FAILURE CONGESTIVE [None]
  - CARDIOACTIVE DRUG LEVEL INCREASED [None]
  - CARDIOMEGALY [None]
  - CEREBROVASCULAR DISORDER [None]
  - CONGESTIVE CARDIOMYOPATHY [None]
  - CORONARY ARTERY STENOSIS [None]
  - DEPRESSION [None]
  - DEVICE MALFUNCTION [None]
  - DILATATION VENTRICULAR [None]
  - DRUG INTOLERANCE [None]
  - ECONOMIC PROBLEM [None]
  - EMOTIONAL DISTRESS [None]
  - FALL [None]
  - FATIGUE [None]
  - GASTROINTESTINAL HAEMORRHAGE [None]
  - HYPERKALAEMIA [None]
  - HYPERLIPIDAEMIA [None]
  - HYPERTENSION [None]
  - INTRACARDIAC THROMBUS [None]
  - ISCHAEMIC CARDIOMYOPATHY [None]
  - LEFT ATRIAL DILATATION [None]
  - LEFT VENTRICULAR DYSFUNCTION [None]
  - LEFT VENTRICULAR HYPERTROPHY [None]
  - MITRAL VALVE INCOMPETENCE [None]
  - MULTIPLE INJURIES [None]
  - MYOCARDIAL CALCIFICATION [None]
  - MYOCARDIAL INFARCTION [None]
  - NEPHROLITHIASIS [None]
  - PAIN [None]
  - PAIN IN EXTREMITY [None]
  - PERIPHERAL VASCULAR DISORDER [None]
  - POLLAKIURIA [None]
  - PULMONARY HYPERTENSION [None]
  - PULMONARY OEDEMA [None]
  - RENAL COLIC [None]
  - RENAL FAILURE CHRONIC [None]
  - RIGHT ATRIAL DILATATION [None]
  - SUPRAVENTRICULAR EXTRASYSTOLES [None]
  - TRICUSPID VALVE INCOMPETENCE [None]
  - VERTIGO POSITIONAL [None]
  - WEIGHT INCREASED [None]
